FAERS Safety Report 6287969-8 (Version None)
Quarter: 2009Q3

REPORT INFORMATION
  Report Type: 
  Country: None (occurrence: None)
  Receive Date: 20090729
  Receipt Date: 20070523
  Transmission Date: 20100115
  Serious: Yes (Other)
  Sender: FDA-Public Use
  Company Number: US-ASTRAZENECA-2006UW11361

PATIENT
  Age: 12619 Day
  Sex: Male
  Weight: 124.3 kg

DRUGS (11)
  1. SEROQUEL [Suspect]
     Indication: SLEEP DISORDER
     Route: 048
     Dates: start: 20040301, end: 20040101
  2. SEROQUEL [Suspect]
     Dosage: 75-200 MG
     Route: 048
     Dates: start: 20050317
  3. IMIPRAMINE [Concomitant]
     Indication: SLEEP DISORDER
     Dosage: 1-4 TABS AT BEDTIME
     Dates: start: 20040521
  4. IMIPRAMINE [Concomitant]
     Indication: AFFECTIVE DISORDER
     Dosage: 1-4 TABS AT BEDTIME
     Dates: start: 20040521
  5. HYDROCHLOROTHIAZIDE [Concomitant]
     Dates: start: 20050427
  6. LISINOPRIL [Concomitant]
     Dates: start: 20050427
  7. CLONIDINE [Concomitant]
     Dates: start: 20050427
  8. ACTOS [Concomitant]
     Dates: start: 20050225
  9. CYMBALTA [Concomitant]
     Dates: start: 20050225
  10. VYTORIN [Concomitant]
     Dosage: 10/40, DAILY
     Dates: start: 20050225
  11. ATENOLOL [Concomitant]
     Dates: start: 20060408

REACTIONS (3)
  - DIABETES MELLITUS [None]
  - DIABETIC NEUROPATHY [None]
  - TYPE 2 DIABETES MELLITUS [None]
